FAERS Safety Report 9025648 (Version 1)
Quarter: 2013Q1

REPORT INFORMATION
  Report Type: Spontaneous
  Country: JP (occurrence: JP)
  Receive Date: 20130123
  Receipt Date: 20130123
  Transmission Date: 20140127
  Serious: Yes (Other)
  Sender: FDA-Public Use
  Company Number: JP-009507513-1301JPN009146

PATIENT
  Age: 62 Year
  Sex: Male

DRUGS (15)
  1. GASTER D [Suspect]
     Dosage: 20 MG, UNK
     Route: 048
  2. HIRNAMIN (LEVOMEPROMAZINE MALEATE) [Concomitant]
  3. SERENACE [Concomitant]
  4. AKINETON INJECTION [Concomitant]
     Route: 048
  5. KETAS [Concomitant]
  6. ALLOZYM [Concomitant]
  7. PLAVIX [Concomitant]
  8. TOWAMIN [Concomitant]
  9. BLOPRESS [Concomitant]
  10. GASPORT D [Concomitant]
  11. WARFARIN [Concomitant]
     Route: 048
  12. PRAVASTATIN SODIUM [Concomitant]
  13. AMLODIPINE [Concomitant]
     Route: 048
  14. LOXONIN [Concomitant]
  15. MUCOSTA [Concomitant]

REACTIONS (1)
  - Electrocardiogram QT prolonged [Unknown]
